FAERS Safety Report 19601701 (Version 2)
Quarter: 2021Q3

REPORT INFORMATION
  Report Type: Spontaneous
  Country: US (occurrence: US)
  Receive Date: 20210722
  Receipt Date: 20210730
  Transmission Date: 20211014
  Serious: No
  Sender: FDA-Public Use
  Company Number: US-AMGEN-USASP2021111097

PATIENT
  Age: 54 Year
  Sex: Male

DRUGS (12)
  1. METHOTREXATE. [Concomitant]
     Active Substance: METHOTREXATE
  2. PRAVASTATIN. [Concomitant]
     Active Substance: PRAVASTATIN
  3. TEGRETOL [Concomitant]
     Active Substance: CARBAMAZEPINE
  4. VENTOLINE [SALBUTAMOL] [Concomitant]
     Active Substance: ALBUTEROL SULFATE
  5. ESCITALOPRAM [Concomitant]
     Active Substance: ESCITALOPRAM OXALATE
  6. HYDROCHLOROTH [Concomitant]
     Active Substance: HYDROCHLOROTHIAZIDE
  7. OTEZLA [Suspect]
     Active Substance: APREMILAST
     Indication: RHEUMATOID ARTHRITIS
     Dosage: 30 MILLIGRAM, BID
     Route: 065
     Dates: start: 20181130
  8. AMOXICILLIN. [Concomitant]
     Active Substance: AMOXICILLIN
  9. OMEPRAZOLE. [Concomitant]
     Active Substance: OMEPRAZOLE
  10. ALFUZOSIN [Concomitant]
     Active Substance: ALFUZOSIN
  11. FOLIC ACID. [Concomitant]
     Active Substance: FOLIC ACID
  12. UROCITRA K [Concomitant]

REACTIONS (3)
  - Cough [Not Recovered/Not Resolved]
  - Off label use [Unknown]
  - Intentional dose omission [Unknown]

NARRATIVE: CASE EVENT DATE: 20181130
